FAERS Safety Report 7909045-8 (Version None)
Quarter: 2011Q4

REPORT INFORMATION
  Report Type: 
  Country: None (occurrence: None)
  Receive Date: 20111108
  Receipt Date: 20111103
  Transmission Date: 20120403
  Serious: Yes (Life-Threatening, Hospitalization)
  Sender: FDA-Public Use
  Company Number: 2011SP047125

PATIENT
  Age: 45 Year
  Sex: Female
  Weight: 69 kg

DRUGS (10)
  1. REBETOL [Suspect]
     Indication: HEPATITIS C
     Dosage: 1000 MG; QD; PO
     Route: 048
     Dates: start: 20100915, end: 20110101
  2. OMEPRAZOLE [Concomitant]
  3. VIRAFERONPEG [Suspect]
     Indication: HEPATITIS C
     Dosage: 0.45 ML; QW; SC
     Route: 058
     Dates: start: 20100915, end: 20110101
  4. NEBIVOLOL HCL [Concomitant]
  5. CYMBALTA [Concomitant]
  6. IMOVANE [Concomitant]
  7. SPIRONOLACTONE [Concomitant]
  8. TERCIAN [Concomitant]
  9. NEORECORMON [Concomitant]
  10. DEPAKENE [Concomitant]

REACTIONS (16)
  - LUNG DISORDER [None]
  - GENERAL PHYSICAL HEALTH DETERIORATION [None]
  - INFECTION [None]
  - ATELECTASIS [None]
  - CYTOLYTIC HEPATITIS [None]
  - CREPITATIONS [None]
  - RENAL FAILURE ACUTE [None]
  - BLOOD PRESSURE DECREASED [None]
  - PNEUMONIA STREPTOCOCCAL [None]
  - LEUKOPENIA [None]
  - RESPIRATORY FAILURE [None]
  - SEPSIS [None]
  - CHOLESTASIS [None]
  - THROMBOCYTOPENIA [None]
  - HYPOXIA [None]
  - TACHYCARDIA [None]
